FAERS Safety Report 22202425 (Version 2)
Quarter: 2023Q2

REPORT INFORMATION
  Report Type: Spontaneous
  Country: IN (occurrence: IN)
  Receive Date: 20230412
  Receipt Date: 20230427
  Transmission Date: 20230722
  Serious: Yes (Other)
  Sender: FDA-Public Use
  Company Number: IN-PFIZER INC-202101227191

PATIENT
  Age: 70 Year
  Sex: Male
  Weight: 85.8 kg

DRUGS (6)
  1. INLYTA [Suspect]
     Active Substance: AXITINIB
     Indication: Metastatic renal cell carcinoma
     Dosage: 5 MG ONCE
     Dates: start: 20210713
  2. INLYTA [Suspect]
     Active Substance: AXITINIB
     Dosage: 5 MG, 1X/DAY
     Route: 048
     Dates: start: 20210719
  3. INLYTA [Suspect]
     Active Substance: AXITINIB
     Dosage: 5 MG, 1X/DAY(1-0-0 X 1 WEEK )
     Route: 048
     Dates: start: 20210825
  4. INLYTA [Suspect]
     Active Substance: AXITINIB
     Dosage: 5 MG, 2X/DAY(1-0-1 X 1 WEEK )
  5. INLYTA [Suspect]
     Active Substance: AXITINIB
     Dosage: 5 MG, 1X/DAY(1-0-0 X 3 MONTHS)
     Route: 048
  6. URIMAX [TAMSULOSIN HYDROCHLORIDE] [Concomitant]
     Dosage: 4 MG
     Dates: start: 201904

REACTIONS (6)
  - Acute coronary syndrome [Unknown]
  - Blood pressure increased [Unknown]
  - Arthralgia [Unknown]
  - Pruritus [Not Recovered/Not Resolved]
  - Heart rate increased [Unknown]
  - Off label use [Unknown]

NARRATIVE: CASE EVENT DATE: 20211214
